FAERS Safety Report 7671843-6 (Version None)
Quarter: 2011Q3

REPORT INFORMATION
  Report Type: 
  Country: None (occurrence: None)
  Receive Date: 20110809
  Receipt Date: 20110802
  Transmission Date: 20111222
  Serious: Yes (Hospitalization)
  Sender: FDA-Public Use
  Company Number: US-PFIZER INC-2011177454

PATIENT
  Age: 58 Year
  Sex: Female
  Weight: 79 kg

DRUGS (3)
  1. CLADRIBINE [Suspect]
     Indication: MANTLE CELL LYMPHOMA
     Dosage: DAYS 1-5; 5 MG/M2
     Dates: end: 20110711
  2. RITUXIMAB [Suspect]
     Indication: MANTLE CELL LYMPHOMA
     Dosage: DAY 1;  325 MG/M2
     Dates: end: 20110705
  3. TORISEL [Suspect]
     Indication: MANTLE CELL LYMPHOMA
     Dosage: DAYS 1, 18, 15, 22;  25 MG ; Q 28 DAYS MAX OF 6 CYCLES
     Dates: start: 20110606, end: 20110718

REACTIONS (1)
  - DEVICE RELATED INFECTION [None]
